FAERS Safety Report 9506506 (Version 4)
Quarter: 2013Q4

REPORT INFORMATION
  Report Type: Report from Study
  Country: IL (occurrence: IL)
  Receive Date: 20130906
  Receipt Date: 20131221
  Transmission Date: 20140711
  Serious: Yes (Hospitalization)
  Sender: FDA-Public Use
  Company Number: PHHO2013IL002060

PATIENT
  Sex: 0

DRUGS (20)
  1. BLINDED ACZ885 [Suspect]
     Indication: ARTERIOSCLEROSIS
     Dosage: DOUBLE BLIND
     Route: 058
     Dates: start: 20121203
  2. BLINDED PLACEBO [Suspect]
     Indication: ARTERIOSCLEROSIS
     Dosage: DOUBLE BLIND
     Route: 058
     Dates: start: 20121203
  3. BLINDED ACZ885 [Suspect]
     Indication: TYPE 2 DIABETES MELLITUS
  4. BLINDED PLACEBO [Suspect]
     Indication: TYPE 2 DIABETES MELLITUS
  5. LANTUS [Concomitant]
     Indication: DIABETES MELLITUS
     Dosage: 40 U, QD
  6. PLAVIX [Concomitant]
     Indication: MYOCARDIAL ISCHAEMIA
     Dosage: 75 MG, QD
  7. PLAVIX [Concomitant]
     Indication: CARDIOVASCULAR EVENT PROPHYLAXIS
  8. NORVASC [Concomitant]
     Indication: HYPERTENSION
     Dosage: 10 MG, QD
  9. ASPIRIN [Concomitant]
     Indication: MYOCARDIAL ISCHAEMIA
     Dosage: 100 MG, QD
  10. ASPIRIN [Concomitant]
     Indication: CARDIOVASCULAR EVENT PROPHYLAXIS
  11. LIPITOR [Concomitant]
     Indication: DYSLIPIDAEMIA
     Dosage: 80 MG, QD
  12. NORMALOL [Concomitant]
     Indication: HYPERTENSION
     Dosage: 50 MG, QD
  13. FUSID [Concomitant]
     Indication: RENAL FAILURE CHRONIC
     Dosage: 40 MG, QD
     Dates: start: 20121128
  14. CLOPIDOGREL [Concomitant]
     Indication: CARDIOVASCULAR EVENT PROPHYLAXIS
     Dosage: 75 MG, QD
  15. AMLODIPINE [Concomitant]
     Indication: HYPERTENSION
     Dosage: 10 MG, QD
  16. HUMALOG [Concomitant]
     Indication: DIABETES MELLITUS
     Dosage: 84 U, BID
  17. RAMIPRIL [Concomitant]
     Indication: HYPERTENSION
     Dosage: 5 MG, QD
  18. RAMIPRIL [Concomitant]
     Indication: RENAL FAILURE CHRONIC
  19. ATORVASTATIN [Concomitant]
     Indication: HYPERLIPIDAEMIA
     Dosage: 80 MG, QD
  20. LOSARTAN [Concomitant]
     Indication: HYPERTENSION
     Dosage: 50 MG, QD

REACTIONS (2)
  - Cholecystitis acute [Recovered/Resolved]
  - Gastroenteritis [Recovered/Resolved]
